FAERS Safety Report 5287573-4 (Version None)
Quarter: 2007Q1

REPORT INFORMATION
  Report Type: 
  Country: None (occurrence: None)
  Receive Date: 20070126
  Receipt Date: 20060621
  Transmission Date: 20070707
  Serious: No
  Sender: FDA-Public Use
  Company Number: 2006CT001102

PATIENT
  Age: 19 Year
  Sex: Male
  Weight: 42.2 kg

DRUGS (11)
  1. VENTAVIS [Suspect]
     Indication: PULMONARY HYPERTENSION
     Dosage: 2.5 UG; 6XD; INH
     Route: 055
     Dates: start: 20060607, end: 20060621
  2. SILDENAFIL CITRATE [Concomitant]
  3. DIGOXIN [Concomitant]
  4. LISINOPRIL [Concomitant]
  5. ALDACTAZIDE [Concomitant]
  6. CARVEDILOL [Concomitant]
  7. WARFARIN [Concomitant]
  8. PRILOSEC [Concomitant]
  9. FERROUS SULFATE [Concomitant]
  10. EPOGEN [Concomitant]
  11. ACETAMINOPHEN [Concomitant]

REACTIONS (5)
  - BLOOD PRESSURE DECREASED [None]
  - COUGH [None]
  - DIZZINESS [None]
  - HAEMOPTYSIS [None]
  - LUNG DISORDER [None]
